FAERS Safety Report 14296277 (Version 3)
Quarter: 2018Q1

REPORT INFORMATION
  Report Type: Spontaneous
  Country: US (occurrence: US)
  Receive Date: 20171218
  Receipt Date: 20180103
  Transmission Date: 20180509
  Serious: Yes (Hospitalization)
  Sender: FDA-Public Use
  Company Number: US-PROCTER+GAMBLE-GS17137186

PATIENT

DRUGS (2)
  1. VICKS SINEX NOS [Suspect]
     Active Substance: OXYMETAZOLINE HYDROCHLORIDE OR PHENYLEPHRINE HYDROCHLORIDE
     Indication: UPPER RESPIRATORY TRACT INFECTION
     Dosage: UNK UNK, 3 /DAY
     Route: 045
     Dates: start: 2015
  2. VICKS SINEX NOS [Suspect]
     Active Substance: OXYMETAZOLINE HYDROCHLORIDE OR PHENYLEPHRINE HYDROCHLORIDE
     Indication: NASAL SEPTUM DEVIATION

REACTIONS (13)
  - Nasal congestion [Recovering/Resolving]
  - Paranasal sinus discomfort [Recovering/Resolving]
  - Product use in unapproved indication [Recovered/Resolved]
  - Inappropriate schedule of drug administration [Recovered/Resolved]
  - Chronic obstructive pulmonary disease [Unknown]
  - Sinus disorder [Unknown]
  - Intentional product misuse [Unknown]
  - Migraine [Unknown]
  - Panic attack [Unknown]
  - Incorrect drug administration duration [Recovered/Resolved]
  - Condition aggravated [Unknown]
  - Sinusitis [Not Recovered/Not Resolved]
  - Drug dependence [Recovering/Resolving]

NARRATIVE: CASE EVENT DATE: 2016
